FAERS Safety Report 24146292 (Version 1)
Quarter: 2024Q3

REPORT INFORMATION
  Report Type: Spontaneous
  Country: US (occurrence: US)
  Receive Date: 20240729
  Receipt Date: 20240729
  Transmission Date: 20241016
  Serious: Yes (Other)
  Sender: SANDOZ
  Company Number: US-SANDOZ-SDZ2024US068160

PATIENT
  Age: 72 Year
  Sex: Male

DRUGS (2)
  1. TESTOSTERONE [Suspect]
     Active Substance: TESTOSTERONE
     Indication: Primary hypogonadism
     Dosage: 250 MG/ML, EVERY 7-10 DAYS
     Route: 065
     Dates: start: 2016
  2. TESTOSTERONE [Suspect]
     Active Substance: TESTOSTERONE
     Dosage: UNK
     Route: 065
     Dates: start: 2010, end: 2015

REACTIONS (4)
  - Prostate cancer metastatic [Unknown]
  - Breast cancer male [Unknown]
  - Product administration error [Unknown]
  - Contraindicated product administered [Unknown]
